FAERS Safety Report 11692037 (Version 1)
Quarter: 2015Q4

REPORT INFORMATION
  Report Type: Spontaneous
  Country: US (occurrence: US)
  Receive Date: 20151103
  Receipt Date: 20151103
  Transmission Date: 20160304
  Serious: Yes (Hospitalization, Other)
  Sender: FDA-Public Use
  Company Number: US-AMGEN-USASP2015104777

PATIENT
  Age: 69 Year
  Sex: Female
  Weight: 144 kg

DRUGS (8)
  1. PROLIA [Suspect]
     Active Substance: DENOSUMAB
     Indication: OSTEOPOROSIS
     Dosage: 60 MG, Q6MO
     Route: 058
     Dates: start: 201310
  2. LIPITOR [Concomitant]
     Active Substance: ATORVASTATIN CALCIUM
     Dosage: 10 MG, NIGHTLY
     Route: 048
  3. FLU VACCINE VII [Concomitant]
     Active Substance: INFLUENZA VIRUS VACCINE
     Dosage: UNK
     Dates: start: 20140409, end: 20140409
  4. NORVASC [Concomitant]
     Active Substance: AMLODIPINE BESYLATE
     Dosage: 10 MG, UNK
  5. PNEUMOCOCCAL VACCINE POLYVALENT NOS [Concomitant]
     Active Substance: PNEUMOCOCCAL VACCINE POLYVALENT
     Dosage: UNK
     Dates: start: 20140409, end: 20140409
  6. PLAVIX [Concomitant]
     Active Substance: CLOPIDOGREL BISULFATE
  7. ZIAC [Concomitant]
     Active Substance: BISOPROLOL FUMARATE\HYDROCHLOROTHIAZIDE
     Dosage: 10-6.25 MG
  8. DIOVAN [Concomitant]
     Active Substance: VALSARTAN
     Dosage: Q320 MG, NIGHTLY
     Route: 048

REACTIONS (6)
  - Diarrhoea [Unknown]
  - Pneumonia [Unknown]
  - Alcohol abuse [Unknown]
  - Hypothyroidism [Unknown]
  - Atrial fibrillation [Unknown]
  - Bronchitis [Unknown]

NARRATIVE: CASE EVENT DATE: 201402
